FAERS Safety Report 4506457-X (Version None)
Quarter: 2004Q4

REPORT INFORMATION
  Report Type: 
  Country: None (occurrence: None)
  Receive Date: 20041122
  Receipt Date: 20041109
  Transmission Date: 20050328
  Serious: Yes (Hospitalization)
  Sender: FDA-Public Use
  Company Number: JP-JNJFOC-20041006104

PATIENT
  Sex: Male
  Weight: 80 kg

DRUGS (24)
  1. REMICADE [Suspect]
     Route: 042
  2. REMICADE [Suspect]
     Route: 042
  3. REMICADE [Suspect]
     Indication: RHEUMATOID ARTHRITIS
     Route: 042
  4. RHEUMATREX [Suspect]
     Indication: RHEUMATOID ARTHRITIS
     Route: 049
  5. PREDONINE [Concomitant]
     Indication: RHEUMATOID ARTHRITIS
     Route: 049
  6. RIMATIL [Concomitant]
     Indication: RHEUMATOID ARTHRITIS
     Route: 049
  7. AZULFIDINE [Concomitant]
     Indication: RHEUMATOID ARTHRITIS
     Route: 049
  8. CLINORIL [Concomitant]
     Indication: RHEUMATOID ARTHRITIS
     Route: 049
  9. VOLTAREN [Concomitant]
     Indication: RHEUMATOID ARTHRITIS
  10. NEUROTROPIN [Concomitant]
     Route: 049
  11. MYONAL [Concomitant]
     Route: 049
  12. ALFAROL [Concomitant]
     Route: 049
  13. DEPAS [Concomitant]
     Route: 049
  14. LENDORMIN [Concomitant]
  15. TOFRANIL [Concomitant]
  16. BEZATOL SR [Concomitant]
  17. PARIET [Concomitant]
  18. MAGNESIUM OXIDE [Concomitant]
  19. ALLOID G [Concomitant]
  20. MILTAX [Concomitant]
  21. TSUMURA KUDZU EXTRACT [Concomitant]
  22. ALLELOK [Concomitant]
  23. ULCERMIN [Concomitant]
  24. SELBEX [Concomitant]

REACTIONS (6)
  - BLOOD CREATININE DECREASED [None]
  - CHEST X-RAY ABNORMAL [None]
  - CULTURE POSITIVE [None]
  - DRUG INTERACTION [None]
  - LUNG INFILTRATION [None]
  - PNEUMONIA [None]
